FAERS Safety Report 11181141 (Version 1)
Quarter: 2015Q2

REPORT INFORMATION
  Report Type: Report from Study
  Country: FR (occurrence: FR)
  Receive Date: 20150611
  Receipt Date: 20150611
  Transmission Date: 20150821
  Serious: Yes (Hospitalization)
  Sender: FDA-Public Use
  Company Number: FR-B.I. PHARMACEUTICALS,INC./RIDGEFIELD-2015-BI-30159II

PATIENT
  Age: 58 Year
  Sex: Male

DRUGS (2)
  1. BIBW 2992 [Suspect]
     Active Substance: AFATINIB
     Indication: COLORECTAL CANCER METASTATIC
     Dosage: 40 MG
     Route: 048
     Dates: start: 20150415
  2. CETUXIMAB [Suspect]
     Active Substance: CETUXIMAB
     Indication: COLORECTAL CANCER METASTATIC
     Route: 042
     Dates: start: 20150415

REACTIONS (3)
  - Diarrhoea [Unknown]
  - Pyrexia [Unknown]
  - Abdominal pain [Unknown]

NARRATIVE: CASE EVENT DATE: 20150523
